FAERS Safety Report 4444401-4 (Version None)
Quarter: 2004Q3

REPORT INFORMATION
  Report Type: 
  Country: None (occurrence: None)
  Receive Date: 20040902
  Receipt Date: 20040818
  Transmission Date: 20050211
  Serious: Yes (Hospitalization)
  Sender: FDA-Public Use
  Company Number: 177883

PATIENT
  Age: 55 Year
  Sex: Female
  Weight: 78.0187 kg

DRUGS (4)
  1. AVONEX [Suspect]
     Indication: MULTIPLE SCLEROSIS
     Dosage: 30 MCG QW IM
     Route: 030
     Dates: start: 20020227, end: 20030301
  2. AVONEX [Suspect]
     Indication: MULTIPLE SCLEROSIS
     Dosage: 30 MCG QW IM
     Route: 030
     Dates: start: 20030518
  3. PREMARIN [Concomitant]
  4. MULTIVITAMIN [Concomitant]

REACTIONS (8)
  - BURNING SENSATION [None]
  - CONTUSION [None]
  - HYPERAESTHESIA [None]
  - HYPOTRICHOSIS [None]
  - OSTEOPENIA [None]
  - SPIDER VEIN [None]
  - TENSION HEADACHE [None]
  - TINNITUS [None]
